FAERS Safety Report 12778968 (Version 1)
Quarter: 2016Q3

REPORT INFORMATION
  Report Type: Spontaneous
  Country: US (occurrence: US)
  Receive Date: 20160926
  Receipt Date: 20160926
  Transmission Date: 20161109
  Serious: No
  Sender: FDA-Public Use
  Company Number: US-JAZZ-2016-US-011252

PATIENT
  Sex: Male

DRUGS (7)
  1. XYREM [Suspect]
     Active Substance: SODIUM OXYBATE
     Indication: HEAD INJURY
     Dosage: 2.25 G, BID
     Route: 048
     Dates: start: 200611, end: 200701
  2. DIAZEPAM. [Concomitant]
     Active Substance: DIAZEPAM
  3. CIALIS [Concomitant]
     Active Substance: TADALAFIL
  4. XYREM [Suspect]
     Active Substance: SODIUM OXYBATE
     Dosage: 4.5 G, BID
     Route: 048
     Dates: start: 200701
  5. CHLORPROMAZINE. [Concomitant]
     Active Substance: CHLORPROMAZINE
  6. VERAPAMIL [Concomitant]
     Active Substance: VERAPAMIL HYDROCHLORIDE
  7. SEROQUEL [Concomitant]
     Active Substance: QUETIAPINE FUMARATE

REACTIONS (1)
  - Anxiety [Unknown]
